FAERS Safety Report 5290856-5 (Version None)
Quarter: 2007Q2

REPORT INFORMATION
  Report Type: 
  Country: None (occurrence: None)
  Receive Date: 20070409
  Receipt Date: 20070327
  Transmission Date: 20071010
  Serious: Yes (Other)
  Sender: FDA-Public Use
  Company Number: IE-PFIZER INC-2007025336

PATIENT
  Age: 72 Year
  Sex: Male

DRUGS (7)
  1. LYRICA [Suspect]
     Route: 048
  2. BENAZEPRIL HYDROCHLORIDE [Concomitant]
  3. CARVEDILOL [Concomitant]
  4. DIGOXIN [Concomitant]
  5. GLYCERYL TRINITRATE [Concomitant]
  6. FUROSEMIDE [Concomitant]
  7. WARFARIN SODIUM [Concomitant]

REACTIONS (1)
  - CARDIAC FAILURE [None]
